FAERS Safety Report 23743156 (Version 1)
Quarter: 2024Q2

REPORT INFORMATION
  Report Type: Spontaneous
  Country: US (occurrence: US)
  Receive Date: 20240415
  Receipt Date: 20240415
  Transmission Date: 20240716
  Serious: Yes (Other)
  Sender: FDA-Public Use
  Company Number: None

PATIENT
  Age: 69 Year
  Sex: Male

DRUGS (4)
  1. TACROLIMUS [Suspect]
     Active Substance: TACROLIMUS
     Indication: Immunosuppressant drug therapy
     Route: 065
     Dates: end: 2015
  2. SIROLIMUS [Suspect]
     Active Substance: SIROLIMUS
     Indication: Immunosuppressant drug therapy
     Route: 065
     Dates: end: 2015
  3. PREDNISONE [Suspect]
     Active Substance: PREDNISONE
     Indication: Immunosuppressant drug therapy
     Route: 065
     Dates: end: 2015
  4. MYCOPHENOLATE MOFETIL [Suspect]
     Active Substance: MYCOPHENOLATE MOFETIL
     Indication: Immunosuppressant drug therapy
     Route: 065
     Dates: end: 2015

REACTIONS (7)
  - Squamous cell carcinoma of skin [Recovered/Resolved]
  - Basal cell carcinoma [Recovered/Resolved]
  - Prostate cancer [Recovered/Resolved]
  - Bladder transitional cell carcinoma [Recovered/Resolved]
  - Nephropathy [Recovered/Resolved]
  - BK virus infection [Unknown]
  - Retroperitoneal lymphadenopathy [Recovered/Resolved]

NARRATIVE: CASE EVENT DATE: 20101001
